FAERS Safety Report 5857533-0 (Version None)
Quarter: 2008Q3

REPORT INFORMATION
  Report Type: 
  Country: None (occurrence: None)
  Receive Date: 20080818
  Receipt Date: 20080716
  Transmission Date: 20090109
  Serious: No
  Sender: FDA-Public Use
  Company Number: TPA2008A00959

PATIENT
  Age: 38 Year
  Sex: Female
  Weight: 75.2971 kg

DRUGS (4)
  1. ROZEREM [Suspect]
     Indication: INSOMNIA
     Dosage: 8 MG, HS, PER ORAL
     Route: 048
     Dates: start: 20080621, end: 20080622
  2. IBUPROFEN [Suspect]
     Indication: ARTHRALGIA
  3. ALLEGRA-D (PSEUDOEPHEDRINE HYDROCHLORIDE, FEXOFENADINE HYDROCHLORIDE) [Concomitant]
  4. BENADRYL [Concomitant]

REACTIONS (6)
  - DYSPEPSIA [None]
  - FATIGUE [None]
  - HANGOVER [None]
  - MIGRAINE [None]
  - NAUSEA [None]
  - NERVOUSNESS [None]
